FAERS Safety Report 6093050-3 (Version None)
Quarter: 2009Q1

REPORT INFORMATION
  Report Type: 
  Country: None (occurrence: None)
  Receive Date: 20090224
  Receipt Date: 20090209
  Transmission Date: 20090719
  Serious: Yes (Hospitalization)
  Sender: FDA-Public Use
  Company Number: IPS_01492_2009

PATIENT
  Sex: Female
  Weight: 62 kg

DRUGS (5)
  1. APO-GO (APO-GO - APOMORPHINE HYDROCHLORIDE [Suspect]
     Indication: PARKINSON'S DISEASE
     Dosage: 77.5 MG FOR 1 YEAR 2 MONTHS SUBCUTANEOUS
     Route: 058
     Dates: start: 20071027, end: 20081201
  2. SIFROL [Concomitant]
  3. ISICOM [Concomitant]
  4. AMAN [Concomitant]
  5. CABERGOLINE [Concomitant]

REACTIONS (2)
  - INFUSION SITE CELLULITIS [None]
  - INFUSION SITE NECROSIS [None]
